FAERS Safety Report 21228344 (Version 1)
Quarter: 2022Q3

REPORT INFORMATION
  Report Type: Spontaneous
  Country: US (occurrence: US)
  Receive Date: 20220818
  Receipt Date: 20220818
  Transmission Date: 20221027
  Serious: Yes (Hospitalization)
  Sender: FDA-Public Use
  Company Number: US-MYLANLABS-2022M1086535

PATIENT
  Age: 56 Year
  Sex: Male

DRUGS (2)
  1. ALBUTEROL [Suspect]
     Active Substance: ALBUTEROL
     Indication: Asthma exercise induced
     Dosage: UNK (ALBUTEROL INHALER TO USE ON AN AS-NEEDED BASIS)
     Route: 055
  2. FORMOTEROL\MOMETASONE [Suspect]
     Active Substance: FORMOTEROL\MOMETASONE
     Indication: Asthma exercise induced
     Dosage: UNK (MOMETASONE-FORMOTEROL INHALER)
     Route: 055

REACTIONS (1)
  - Drug ineffective [Unknown]
